FAERS Safety Report 7376346-4 (Version None)
Quarter: 2011Q1

REPORT INFORMATION
  Report Type: 
  Country: None (occurrence: None)
  Receive Date: 20110325
  Receipt Date: 20110311
  Transmission Date: 20110831
  Serious: Yes (Other)
  Sender: FDA-Public Use
  Company Number: CA-JNJFOC-20110306714

PATIENT
  Sex: Male
  Weight: 112.04 kg

DRUGS (2)
  1. REMICADE [Suspect]
     Route: 042
  2. REMICADE [Suspect]
     Indication: PSORIASIS
     Route: 042

REACTIONS (8)
  - INFUSION RELATED REACTION [None]
  - HYPERHIDROSIS [None]
  - SWELLING FACE [None]
  - PRURITUS [None]
  - LOSS OF CONSCIOUSNESS [None]
  - ASTHENIA [None]
  - PALLOR [None]
  - URTICARIA [None]
